FAERS Safety Report 18263052 (Version 1)
Quarter: 2020Q3

REPORT INFORMATION
  Report Type: Spontaneous
  Country: US (occurrence: US)
  Receive Date: 20200914
  Receipt Date: 20200914
  Transmission Date: 20201103
  Serious: Yes (Hospitalization)
  Sender: FDA-Public Use
  Company Number: None

PATIENT
  Sex: Female

DRUGS (13)
  1. AMOX [Concomitant]
     Active Substance: UNSPECIFIED INGREDIENT
  2. ZONSAMIDE [Concomitant]
  3. PULMOZYME [Suspect]
     Active Substance: DORNASE ALFA
     Dosage: ?          OTHER ROUTE:NEBULIZER?
     Dates: start: 20200103
  4. ONFI [Concomitant]
     Active Substance: CLOBAZAM
  5. PROBIOTIC [Concomitant]
     Active Substance: PROBIOTICS NOS
  6. ABDEK [Concomitant]
  7. BACLOFEN. [Concomitant]
     Active Substance: BACLOFEN
  8. LEVOCARNITI [Concomitant]
  9. SYMICORT [Concomitant]
     Active Substance: BUDESONIDE\FORMOTEROL FUMARATE DIHYDRATE
  10. METOCLOPRAM [Concomitant]
     Active Substance: METOCLOPRAMIDE
  11. VALPROIC [Concomitant]
     Active Substance: VALPROIC ACID
  12. VITAMIN D3 [Concomitant]
     Active Substance: CHOLECALCIFEROL
  13. FYCOMPIA [Concomitant]

REACTIONS (1)
  - Pneumonia [None]
